FAERS Safety Report 19855310 (Version 1)
Quarter: 2021Q3

REPORT INFORMATION
  Report Type: Spontaneous
  Country: US (occurrence: US)
  Receive Date: 20210919
  Receipt Date: 20210919
  Transmission Date: 20211014
  Serious: No
  Sender: FDA-Public Use
  Company Number: None

PATIENT
  Age: 36 Year
  Sex: Female
  Weight: 71.1 kg

DRUGS (8)
  1. SYMBICORT AS NEEDED [Concomitant]
  2. AIMOVIG [Suspect]
     Active Substance: ERENUMAB-AOOE
     Indication: MIGRAINE
     Dosage: ?          QUANTITY:1 INJECTION(S);OTHER FREQUENCY:ONCE PER MONTH;OTHER ROUTE:INJECTION INTO ABDOMEN?
     Dates: start: 20210818, end: 20210919
  3. SPIRONOLACTONE 100MG [Concomitant]
     Active Substance: SPIRONOLACTONE
  4. VYVANASE 70MG [Concomitant]
  5. CAMBIA AS NEEDED [Concomitant]
  6. VITAMIN B COMPLEX [Concomitant]
     Active Substance: CYANOCOBALAMIN\DEXPANTHENOL\NIACINAMIDE\PYRIDOXINE HYDROCHLORIDE\RIBOFLAVIN 5^-PHOSPHATE SODIUM\THIAMINE HYDROCHLORIDE\VITAMIN B COMPLEX
  7. JUNEL 1.5/30 [Concomitant]
     Active Substance: ETHINYL ESTRADIOL\NORETHINDRONE ACETATE
  8. VITAMIN D 1000IU/DAY [Concomitant]

REACTIONS (7)
  - Dry skin [None]
  - Pain [None]
  - Constipation [None]
  - Intermenstrual bleeding [None]
  - Alopecia [None]
  - Skin exfoliation [None]
  - Stress [None]

NARRATIVE: CASE EVENT DATE: 20210821
